FAERS Safety Report 24249792 (Version 1)
Quarter: 2024Q3

REPORT INFORMATION
  Report Type: Spontaneous
  Country: US (occurrence: None)
  Receive Date: 20240823
  Receipt Date: 20240823
  Transmission Date: 20241017
  Serious: Yes (Other)
  Sender: Public
  Company Number: None

PATIENT
  Age: 61 Year
  Sex: Male

DRUGS (1)
  1. PERFLUTREN [Suspect]
     Active Substance: PERFLUTREN
     Dosage: 1.3 ML ONCE INTRAVENOUS?
     Route: 042

REACTIONS (6)
  - Back pain [None]
  - Facial pain [None]
  - Headache [None]
  - Erythema [None]
  - Dyspnoea [None]
  - Feeling abnormal [None]

NARRATIVE: CASE EVENT DATE: 20240711
